FAERS Safety Report 10292090 (Version 1)
Quarter: 2014Q3

REPORT INFORMATION
  Report Type: Spontaneous
  Country: US (occurrence: US)
  Receive Date: 20140710
  Receipt Date: 20140710
  Transmission Date: 20150326
  Serious: No
  Sender: FDA-Public Use
  Company Number: US-PURDUE-USA-2013-0107646

PATIENT
  Sex: Female

DRUGS (3)
  1. HYDROCODONE [Concomitant]
     Active Substance: HYDROCODONE
     Indication: BREAKTHROUGH PAIN
  2. BUTRANS [Suspect]
     Active Substance: BUPRENORPHINE
     Indication: ARTHRALGIA
     Dosage: 5 MCG/HR, WEEKLY
     Route: 062
     Dates: start: 2011, end: 20131016
  3. BUTRANS [Suspect]
     Active Substance: BUPRENORPHINE
     Indication: SCOLIOSIS

REACTIONS (4)
  - Burning sensation [Not Recovered/Not Resolved]
  - Rash [Not Recovered/Not Resolved]
  - Intentional product misuse [Unknown]
  - Pruritus [Unknown]
